FAERS Safety Report 26000520 (Version 1)
Quarter: 2025Q4

REPORT INFORMATION
  Report Type: Spontaneous
  Country: US (occurrence: US)
  Receive Date: 20251105
  Receipt Date: 20251105
  Transmission Date: 20260118
  Serious: Yes (Hospitalization, Other)
  Sender: CADILA
  Company Number: US-CPL-005879

PATIENT
  Age: 74 Year
  Sex: Female

DRUGS (10)
  1. HYDRALAZINE [Suspect]
     Active Substance: HYDRALAZINE HYDROCHLORIDE
     Indication: Blood pressure increased
     Dosage: TWICE A DAY ON DAY 8
     Route: 048
  2. CEFTRIAXONE [Concomitant]
     Active Substance: CEFTRIAXONE
     Indication: Pneumonia aspiration
     Dosage: ONCE DAILY FOR SEVEN DAYS,
     Route: 042
  3. DOXYCYCLINE [Concomitant]
     Active Substance: DOXYCYCLINE
     Indication: Pneumonia aspiration
     Dosage: TWICE DAILY FOR SEVEN DAYS
     Route: 048
  4. METRONIDAZOLE [Concomitant]
     Active Substance: METRONIDAZOLE
     Indication: Pneumonia aspiration
     Dosage: TWICE DAILY FOR SEVEN DAYS
     Route: 048
  5. AZITHROMYCIN [Concomitant]
     Active Substance: AZITHROMYCIN
     Indication: Pneumonia aspiration
     Dosage: ON DAY 2
     Route: 048
  6. DOXYCYCLINE [Concomitant]
     Active Substance: DOXYCYCLINE
     Indication: Pneumonia aspiration
  7. NIFEDIPINE [Concomitant]
     Active Substance: NIFEDIPINE
     Indication: Blood pressure increased
  8. HYDRALAZINE [Suspect]
     Active Substance: HYDRALAZINE HYDROCHLORIDE
     Indication: Blood pressure increased
     Dosage: TWICE DAILY ON DAY 08
     Route: 048
  9. HYDRALAZINE [Suspect]
     Active Substance: HYDRALAZINE HYDROCHLORIDE
     Indication: Blood pressure increased
     Dosage: ON DAY 09
     Route: 048
  10. HYDRALAZINE [Suspect]
     Active Substance: HYDRALAZINE HYDROCHLORIDE
     Indication: Blood pressure increased
     Dosage: ON DAY 09
     Route: 048

REACTIONS (2)
  - Diarrhoea [Recovered/Resolved]
  - Acute kidney injury [Recovered/Resolved]
